FAERS Safety Report 14420796 (Version 1)
Quarter: 2018Q1

REPORT INFORMATION
  Report Type: Spontaneous
  Country: US (occurrence: US)
  Receive Date: 20180122
  Receipt Date: 20180122
  Transmission Date: 20180509
  Serious: No
  Sender: FDA-Public Use
  Company Number: US-ROCHE-1900143

PATIENT
  Age: 61 Year
  Weight: 91 kg

DRUGS (3)
  1. RITUXAN [Suspect]
     Active Substance: RITUXIMAB
     Route: 042
     Dates: start: 20170227, end: 20170227
  2. RITUXAN [Suspect]
     Active Substance: RITUXIMAB
     Indication: NON-HODGKIN^S LYMPHOMA
     Route: 042
  3. RITUXAN [Suspect]
     Active Substance: RITUXIMAB
     Route: 042

REACTIONS (4)
  - Ear discomfort [Unknown]
  - Ear pruritus [Unknown]
  - Dysphagia [Unknown]
  - Erythema [Unknown]

NARRATIVE: CASE EVENT DATE: 20170227
